FAERS Safety Report 21101316 (Version 1)
Quarter: 2022Q3

REPORT INFORMATION
  Report Type: Report from Study
  Country: CZ (occurrence: CZ)
  Receive Date: 20220719
  Receipt Date: 20220719
  Transmission Date: 20221027
  Serious: Yes (Other)
  Sender: FDA-Public Use
  Company Number: CZ-CELGENE-CZE-20181207528

PATIENT
  Age: 51 Year
  Sex: Male
  Weight: 79.2 kg

DRUGS (6)
  1. PLACEBO [Suspect]
     Active Substance: UNSPECIFIED INGREDIENT
     Indication: Diffuse large B-cell lymphoma
     Dosage: DURATION TEXT : CYCLE 1
     Route: 048
     Dates: start: 20160620
  2. RITUXIMAB [Suspect]
     Active Substance: RITUXIMAB
     Indication: Diffuse large B-cell lymphoma
     Dosage: FREQUENCY TEXT: NOT PROVIDED?DURATION TEXT : CYCLE 1
     Route: 042
     Dates: start: 20160620
  3. DOXORUBICIN [Suspect]
     Active Substance: DOXORUBICIN
     Indication: Diffuse large B-cell lymphoma
     Dosage: FREQUENCY TEXT: NOT PROVIDED?DURATION TEXT : CYCLE 1
     Route: 042
     Dates: start: 20160620
  4. CYCLOPHOSPHAMIDE [Suspect]
     Active Substance: CYCLOPHOSPHAMIDE
     Indication: Diffuse large B-cell lymphoma
     Dosage: DURATION TEXT : CYCLE 1
     Route: 042
     Dates: start: 20160620
  5. VINCRISTINE [Suspect]
     Active Substance: VINCRISTINE
     Indication: Diffuse large B-cell lymphoma
     Dosage: FREQUENCY TEXT: NOT PROVIDED                                             ?DURATION TEXT : CYCLE 1
     Route: 042
     Dates: start: 20160620
  6. PREDNISONE [Suspect]
     Active Substance: PREDNISONE
     Indication: Diffuse large B-cell lymphoma
     Route: 048
     Dates: start: 20160620

REACTIONS (1)
  - Testicular embryonal carcinoma [Not Recovered/Not Resolved]

NARRATIVE: CASE EVENT DATE: 20181212
